FAERS Safety Report 7033528-9 (Version None)
Quarter: 2010Q4

REPORT INFORMATION
  Report Type: 
  Country: None (occurrence: None)
  Receive Date: 20101007
  Receipt Date: 20100923
  Transmission Date: 20110411
  Serious: Yes (Hospitalization, Other)
  Sender: FDA-Public Use
  Company Number: PHHY2010GR56547

PATIENT
  Age: 44 Year
  Sex: Male

DRUGS (5)
  1. RASILEZ HCT [Suspect]
     Dosage: 300/12.5 MG DAILY
     Dates: start: 20100101, end: 20100814
  2. RASILEZ [Suspect]
     Dosage: 300 MG, UNK
     Dates: start: 20100801
  3. HYDREA [Concomitant]
     Indication: PLATELET COUNT INCREASED
  4. XANAX [Concomitant]
     Indication: BLOOD PRESSURE
     Dosage: UNK
  5. ZANTAC [Concomitant]
     Indication: ABDOMINAL DISCOMFORT
     Dosage: UNK

REACTIONS (3)
  - BLOOD POTASSIUM INCREASED [None]
  - DIZZINESS [None]
  - HYPONATRAEMIA [None]
